FAERS Safety Report 22792877 (Version 5)
Quarter: 2023Q4

REPORT INFORMATION
  Report Type: Report from Study
  Country: US (occurrence: US)
  Receive Date: 20230807
  Receipt Date: 20231208
  Transmission Date: 20240109
  Serious: Yes (Other)
  Sender: FDA-Public Use
  Company Number: US-002147023-NVSC2023US171763

PATIENT
  Age: 58 Year
  Sex: Female

DRUGS (4)
  1. KESIMPTA [Suspect]
     Active Substance: OFATUMUMAB
     Indication: Multiple sclerosis
     Dosage: 20 MG, QMO
     Route: 058
     Dates: start: 20230528, end: 20230803
  2. KESIMPTA [Suspect]
     Active Substance: OFATUMUMAB
     Dosage: 20 MG, QMO
     Route: 058
     Dates: end: 20231129
  3. PREMARIN [Concomitant]
     Active Substance: ESTROGENS, CONJUGATED
     Indication: Oestrogen therapy
     Dosage: UNK
     Route: 065
  4. ESTRACE [Concomitant]
     Active Substance: ESTRADIOL
     Indication: Oestrogen therapy
     Dosage: UNK
     Route: 065

REACTIONS (12)
  - Syncope [Recovered/Resolved]
  - Loss of consciousness [Recovered/Resolved]
  - Confusional state [Recovering/Resolving]
  - Cold sweat [Recovering/Resolving]
  - Nausea [Recovering/Resolving]
  - Feeling hot [Recovering/Resolving]
  - Vitreous floaters [Recovering/Resolving]
  - Urinary retention [Unknown]
  - Neurogenic bladder [Unknown]
  - Lymphocyte count decreased [Not Recovered/Not Resolved]
  - White blood cell count decreased [Not Recovered/Not Resolved]
  - Cystocele [Unknown]

NARRATIVE: CASE EVENT DATE: 20230802
